FAERS Safety Report 8965601 (Version 2)
Quarter: 2013Q1

REPORT INFORMATION
  Report Type: Spontaneous
  Country: DE (occurrence: None)
  Receive Date: 20121205
  Receipt Date: 20121210
  Transmission Date: 20140127
  Serious: Yes (Hospitalization)
  Sender: FDA-Public Use
  Company Number: AUR-APL-2012-05067

PATIENT
  Age: 52 Year
  Sex: Female

DRUGS (2)
  1. MIRTAZAPINE (MIRTAZAPINE) [Suspect]
     Indication: DEPRESSION
     Route: 048
     Dates: start: 20120124, end: 20120125
  2. LORAZEPAM (LORAZEPAM) [Concomitant]

REACTIONS (4)
  - Urosepsis [None]
  - Restless legs syndrome [None]
  - Paraesthesia [None]
  - Insomnia [None]
